FAERS Safety Report 8321239-9 (Version None)
Quarter: 2012Q2

REPORT INFORMATION
  Report Type: 
  Country: None (occurrence: None)
  Receive Date: 20120430
  Receipt Date: 20120420
  Transmission Date: 20120825
  Serious: Yes (Hospitalization)
  Sender: FDA-Public Use
  Company Number: JP-BRISTOL-MYERS SQUIBB COMPANY-16481624

PATIENT
  Age: 65 Year
  Sex: Male
  Weight: 68 kg

DRUGS (6)
  1. KENALOG [Concomitant]
     Dosage: OINTMENT
     Dates: start: 20120207
  2. AZUNOL [Concomitant]
     Dosage: LIQUID
     Dates: start: 20120207
  3. MAGNESIUM SULFATE [Concomitant]
     Dosage: TAB
     Dates: start: 20110906
  4. PACLITAXEL [Suspect]
     Indication: METASTATIC GASTRIC CANCER
     Dosage: LAST DOSE ON 6MAR12 CYCLE 2 ON DY 15
     Route: 042
     Dates: start: 20120124, end: 20120306
  5. OMEPRAZOLE [Concomitant]
     Dosage: TAB
     Dates: start: 20110705
  6. NEXIUM [Concomitant]
     Dosage: CAPSULE
     Dates: start: 20120117

REACTIONS (1)
  - INTERSTITIAL LUNG DISEASE [None]
